FAERS Safety Report 11374562 (Version 1)
Quarter: 2015Q3

REPORT INFORMATION
  Report Type: Spontaneous
  Country: US (occurrence: None)
  Receive Date: 20150812
  Receipt Date: 20150812
  Transmission Date: 20151125
  Serious: Yes (Life-Threatening, Hospitalization)
  Sender: FDA-Public Use
  Company Number: None

PATIENT
  Age: 65 Year
  Sex: Male
  Weight: 78.1 kg

DRUGS (1)
  1. PAZOPANIB [Suspect]
     Active Substance: PAZOPANIB
     Indication: THYROID CANCER METASTATIC
     Route: 048
     Dates: start: 20130619, end: 20150616

REACTIONS (2)
  - Acute myocardial infarction [None]
  - Chest pain [None]

NARRATIVE: CASE EVENT DATE: 20150616
